FAERS Safety Report 12155935 (Version 9)
Quarter: 2017Q3

REPORT INFORMATION
  Report Type: Other
  Country: JP (occurrence: JP)
  Receive Date: 20160307
  Receipt Date: 20170914
  Transmission Date: 20171127
  Serious: Yes (Hospitalization, Other)
  Sender: FDA-Public Use
  Company Number: JP-BRISTOL-MYERS SQUIBB COMPANY-BMS-2016-016814

PATIENT
  Age: 89 Year
  Sex: Female
  Weight: 36.5 kg

DRUGS (9)
  1. VASOLAN                            /00014302/ [Suspect]
     Active Substance: VERAPAMIL HYDROCHLORIDE
     Indication: TACHYCARDIA
     Dosage: UNK
     Route: 065
     Dates: start: 20150413
  2. TAKEPRON [Suspect]
     Active Substance: LANSOPRAZOLE
     Indication: PROPHYLAXIS
     Dosage: 15 MG, QD
     Route: 048
     Dates: start: 20150313, end: 20150321
  3. OMEPRAZOLE. [Concomitant]
     Active Substance: OMEPRAZOLE
     Indication: PRODUCT USED FOR UNKNOWN INDICATION
     Dosage: UNK, QD
     Route: 048
  4. VASOLAN                            /00014302/ [Suspect]
     Active Substance: VERAPAMIL HYDROCHLORIDE
     Indication: ATRIAL FIBRILLATION
     Dosage: 40 MG, BID
     Route: 048
     Dates: start: 20150311, end: 20150321
  5. FRANDOL [Suspect]
     Active Substance: ISOSORBIDE DINITRATE
     Indication: TACHYCARDIA
     Route: 065
  6. ELIQUIS [Suspect]
     Active Substance: APIXABAN
     Indication: CEREBROVASCULAR ACCIDENT PROPHYLAXIS
     Dosage: 5 MG, QD
     Route: 065
     Dates: start: 20150315, end: 20150321
  7. HALFDIGOXIN [Suspect]
     Active Substance: DIGOXIN
     Indication: ATRIAL FIBRILLATION
     Dosage: 0.125 MG, QD
     Route: 048
     Dates: start: 20150312, end: 20150321
  8. FRANDOL [Suspect]
     Active Substance: ISOSORBIDE DINITRATE
     Indication: ATRIAL FIBRILLATION
     Dosage: 40 MG, QD
     Route: 062
     Dates: start: 20150311, end: 20150322
  9. HALFDIGOXIN [Suspect]
     Active Substance: DIGOXIN
     Indication: TACHYCARDIA
     Dosage: 0.062 UNK, UNK
     Route: 065
     Dates: start: 20150629

REACTIONS (3)
  - Atrial flutter [Unknown]
  - Tachycardia [Unknown]
  - Stevens-Johnson syndrome [Recovered/Resolved]

NARRATIVE: CASE EVENT DATE: 20150321
